FAERS Safety Report 12215090 (Version 2)
Quarter: 2016Q2

REPORT INFORMATION
  Report Type: Report from Study
  Country: DE (occurrence: DE)
  Receive Date: 20160328
  Receipt Date: 20160503
  Transmission Date: 20160815
  Serious: Yes (Hospitalization)
  Sender: FDA-Public Use
  Company Number: DE-SA-2016SA058218

PATIENT
  Age: 66 Year
  Sex: Female
  Weight: 69 kg

DRUGS (2)
  1. CABAZITAXEL [Suspect]
     Active Substance: CABAZITAXEL
     Indication: GLIOBLASTOMA MULTIFORME
     Route: 065
  2. CABAZITAXEL [Suspect]
     Active Substance: CABAZITAXEL
     Indication: GLIOBLASTOMA MULTIFORME
     Route: 065
     Dates: start: 20160217, end: 20160217

REACTIONS (1)
  - Seizure [Recovered/Resolved]

NARRATIVE: CASE EVENT DATE: 20160316
